FAERS Safety Report 6427160-5 (Version None)
Quarter: 2009Q4

REPORT INFORMATION
  Report Type: 
  Country: None (occurrence: None)
  Receive Date: 20091104
  Receipt Date: 20091028
  Transmission Date: 20100525
  Serious: Yes (Hospitalization)
  Sender: FDA-Public Use
  Company Number: US-GILEAD-2009-0024907

PATIENT
  Sex: Female
  Weight: 62.198 kg

DRUGS (10)
  1. LETAIRIS [Suspect]
     Indication: PULMONARY ARTERIAL HYPERTENSION
     Route: 048
     Dates: start: 20080703
  2. VENTAVIS [Concomitant]
  3. REVATIO [Concomitant]
  4. FENTANYL-100 [Concomitant]
  5. PREDNISONE TAB [Concomitant]
  6. OXYCODONE [Concomitant]
  7. FERROUS SULFATE TAB [Concomitant]
  8. CARDIZEM [Concomitant]
  9. ALDACTONE [Concomitant]
  10. FOLIC ACID [Concomitant]

REACTIONS (1)
  - PNEUMONIA [None]
